FAERS Safety Report 5244876-7 (Version None)
Quarter: 2007Q1

REPORT INFORMATION
  Report Type: 
  Country: None (occurrence: None)
  Receive Date: 20061201
  Receipt Date: 20060810
  Transmission Date: 20070707
  Serious: No
  Sender: FDA-Public Use
  Company Number: 2006PV019249

PATIENT
  Age: 54 Year
  Sex: Female
  Weight: 78.9259 kg

DRUGS (1)
  1. BYETTA [Suspect]
     Indication: METABOLIC DISORDER
     Dosage: 5 MCG; BID; SC
     Route: 058
     Dates: start: 20060809

REACTIONS (2)
  - INJECTION SITE HAEMORRHAGE [None]
  - UNEVALUABLE EVENT [None]
